FAERS Safety Report 19376043 (Version 2)
Quarter: 2021Q3

REPORT INFORMATION
  Report Type: Report from Study
  Country: DE (occurrence: DE)
  Receive Date: 20210605
  Receipt Date: 20210730
  Transmission Date: 20211014
  Serious: Yes (Other)
  Sender: FDA-Public Use
  Company Number: DE-CELLTRION INC.-2021DE007478

PATIENT

DRUGS (1)
  1. TRUXIMA [Suspect]
     Active Substance: RITUXIMAB-ABBS
     Indication: NON-HODGKIN^S LYMPHOMA
     Dosage: 730 MG (ON DAY 1 OF CYCLE), CYCLIC
     Route: 042
     Dates: start: 20180830, end: 20190103

REACTIONS (10)
  - Abdominal pain [Unknown]
  - Dizziness [Recovered/Resolved]
  - Constipation [Unknown]
  - Arthralgia [Unknown]
  - Eye infection [Recovered/Resolved]
  - Paraesthesia [Unknown]
  - Anaemia [Recovered/Resolved]
  - Nausea [Recovered/Resolved]
  - Rhinitis [Recovered/Resolved]
  - Fatigue [Recovered/Resolved]

NARRATIVE: CASE EVENT DATE: 2018
